FAERS Safety Report 9309969 (Version 1)
Quarter: 2013Q2

REPORT INFORMATION
  Report Type: Spontaneous
  Country: TR (occurrence: US)
  Receive Date: 20130527
  Receipt Date: 20130527
  Transmission Date: 20140414
  Serious: No
  Sender: FDA-Public Use
  Company Number: TR-009507513-1305USA009146

PATIENT
  Sex: Male

DRUGS (1)
  1. COSOPT [Suspect]
     Dosage: UNK

REACTIONS (2)
  - Amnesia [Unknown]
  - Libido decreased [Unknown]
